FAERS Safety Report 9158657 (Version 2)
Quarter: 2013Q2

REPORT INFORMATION
  Report Type: Spontaneous
  Country: US (occurrence: US)
  Receive Date: 20130312
  Receipt Date: 20130426
  Transmission Date: 20140414
  Serious: Yes (Other)
  Sender: FDA-Public Use
  Company Number: US-AMGEN-USASP2013014564

PATIENT
  Age: 43 Year
  Sex: Female
  Weight: 61.22 kg

DRUGS (6)
  1. XGEVA [Suspect]
     Indication: BREAST CANCER METASTATIC
     Dosage: 4 MG, QMO
     Route: 058
     Dates: start: 20120216, end: 20121108
  2. HERCEPTIN [Concomitant]
     Indication: BREAST CANCER
     Dosage: 400 MG, Q3WK
     Route: 042
     Dates: start: 20111122
  3. PERJETA [Concomitant]
     Dosage: 420 MG, Q3WK
     Route: 042
  4. FASLODEX                           /01285001/ [Concomitant]
     Indication: BREAST CANCER METASTATIC
     Dosage: 500 MG, QMO
     Route: 030
     Dates: start: 20120224
  5. AFINITOR [Concomitant]
     Indication: BREAST CANCER
     Dosage: 10 MG, UNK
     Route: 048
     Dates: start: 20120222
  6. ARIMIDEX [Concomitant]
     Indication: BREAST CANCER
     Dosage: 1 MG, QD
     Route: 048
     Dates: start: 20120222

REACTIONS (2)
  - Mouth ulceration [Not Recovered/Not Resolved]
  - Oral mucosal discolouration [Not Recovered/Not Resolved]
